FAERS Safety Report 12162212 (Version 1)
Quarter: 2016Q1

REPORT INFORMATION
  Report Type: Spontaneous
  Country: GB (occurrence: GB)
  Receive Date: 20160309
  Receipt Date: 20160309
  Transmission Date: 20160526
  Serious: Yes (Hospitalization, Other)
  Sender: FDA-Public Use
  Company Number: GB-BAYER-2016-038734

PATIENT
  Age: 64 Year
  Sex: Female

DRUGS (5)
  1. DEXAMETHASONE. [Concomitant]
     Active Substance: DEXAMETHASONE
  2. HYALURONATE SODIUM [Concomitant]
     Active Substance: HYALURONATE SODIUM
     Dosage: UNK
  3. OFLOXACIN. [Suspect]
     Active Substance: OFLOXACIN
     Indication: KERATITIS BACTERIAL
     Dosage: UNK
     Route: 047
     Dates: start: 20160101, end: 20160114
  4. CHLORAMPHENICOL [Concomitant]
     Active Substance: CHLORAMPHENICOL
  5. CIPROFLOXACIN. [Suspect]
     Active Substance: CIPROFLOXACIN
     Indication: KERATITIS BACTERIAL
     Dosage: UNK
     Route: 048
     Dates: start: 20160101

REACTIONS (1)
  - Arrhythmia [Not Recovered/Not Resolved]

NARRATIVE: CASE EVENT DATE: 201601
